FAERS Safety Report 24806459 (Version 3)
Quarter: 2025Q2

REPORT INFORMATION
  Report Type: Report from Study
  Country: US (occurrence: US)
  Receive Date: 20250103
  Receipt Date: 20250423
  Transmission Date: 20250716
  Serious: No
  Sender: SUNOVION
  Company Number: US-SMPA-2024SPA006272AA

PATIENT

DRUGS (1)
  1. ORGOVYX [Suspect]
     Active Substance: RELUGOLIX
     Indication: Prostate cancer
     Dosage: 120 MG, QD
     Route: 048
     Dates: start: 20241230

REACTIONS (10)
  - Emotional disorder [Unknown]
  - Abnormal dreams [Unknown]
  - Pain [Unknown]
  - Apathy [Unknown]
  - Mood swings [Unknown]
  - Arthralgia [Unknown]
  - Middle insomnia [Unknown]
  - Hot flush [Unknown]
  - Product dose omission in error [Unknown]
  - Incorrect dose administered [Unknown]
